FAERS Safety Report 5993647-2 (Version None)
Quarter: 2008Q4

REPORT INFORMATION
  Report Type: 
  Country: None (occurrence: None)
  Receive Date: 20081212
  Receipt Date: 20081210
  Transmission Date: 20090506
  Serious: Yes (Death, Hospitalization)
  Sender: FDA-Public Use
  Company Number: PHHY2008JP30695

PATIENT
  Age: 53 Year
  Sex: Male
  Weight: 63.5 kg

DRUGS (4)
  1. CYCLOSPORINE [Suspect]
     Indication: INTERSTITIAL LUNG DISEASE
     Dosage: UNK
     Dates: start: 20060601, end: 20060701
  2. HORMONES [Suspect]
     Indication: INTERSTITIAL LUNG DISEASE
     Dosage: UNK
     Dates: start: 20060601, end: 20060601
  3. AZATHIOPRINE [Concomitant]
     Indication: INTERSTITIAL LUNG DISEASE
     Dosage: UNK
     Dates: start: 20060701
  4. STEROIDS NOS [Concomitant]

REACTIONS (9)
  - CHEST PAIN [None]
  - DYSPNOEA [None]
  - HAEMORRHAGIC ASCITES [None]
  - HAEMOTHORAX [None]
  - INTERSTITIAL LUNG DISEASE [None]
  - PLEURAL EFFUSION [None]
  - PNEUMATOSIS [None]
  - RESPIRATORY FAILURE [None]
  - SHOCK [None]
